FAERS Safety Report 9105829 (Version 2)
Quarter: 2013Q1

REPORT INFORMATION
  Report Type: Spontaneous
  Country: US (occurrence: US)
  Receive Date: 20130220
  Receipt Date: 20130225
  Transmission Date: 20140127
  Serious: No
  Sender: FDA-Public Use
  Company Number: US-009507513-1302USA007240

PATIENT
  Age: 84 Year
  Sex: Female

DRUGS (1)
  1. JANUVIA [Suspect]
     Indication: TYPE 2 DIABETES MELLITUS
     Dosage: 50 MG TAKEN ONCE DAILY THROUGH A SPLIT 100 MG TABLET
     Route: 048
     Dates: start: 20130206

REACTIONS (4)
  - Blood glucose abnormal [Unknown]
  - Haemoglobin abnormal [Unknown]
  - Headache [Unknown]
  - Wrong technique in drug usage process [Unknown]
